FAERS Safety Report 21843337 (Version 1)
Quarter: 2023Q1

REPORT INFORMATION
  Report Type: Spontaneous
  Country: US (occurrence: US)
  Receive Date: 20230110
  Receipt Date: 20230110
  Transmission Date: 20230417
  Serious: No
  Sender: FDA-Public Use
  Company Number: US-PFIZER INC-PV202300001860

PATIENT
  Sex: Female

DRUGS (1)
  1. PAXLOVID [Suspect]
     Active Substance: NIRMATRELVIR\RITONAVIR
     Indication: COVID-19 treatment
     Dosage: TOOK 3 RITONAVIR BY MISTAKE, 3 RITONAVIR TODAY, 2 NIRMATRELVIR LAST NIGHT BUT ONLY 1 RITONAVIR TODAY

REACTIONS (1)
  - Incorrect dose administered [Unknown]
